FAERS Safety Report 8850273 (Version 2)
Quarter: 2012Q4

REPORT INFORMATION
  Report Type: 
  Country: GB (occurrence: GB)
  Receive Date: 20121019
  Receipt Date: 20121029
  Transmission Date: 20130627
  Serious: Yes (Other)
  Sender: FDA-Public Use
  Company Number: GB-ROCHE-1146890

PATIENT
  Age: 61 Year
  Sex: Male
  Weight: 98 kg

DRUGS (2)
  1. ZELBORAF [Suspect]
     Indication: MALIGNANT MELANOMA
     Route: 048
     Dates: start: 20120920, end: 20121017
  2. ZELBORAF [Suspect]
     Dosage: therapy restarted at lower dose
     Route: 048

REACTIONS (2)
  - Toxicity to various agents [Unknown]
  - Neutropenia [Recovered/Resolved]
